FAERS Safety Report 9938351 (Version 2)
Quarter: 2014Q1

REPORT INFORMATION
  Report Type: Report from Study
  Country: US (occurrence: US)
  Receive Date: 20140303
  Receipt Date: 20140303
  Transmission Date: 20141002
  Serious: No
  Sender: FDA-Public Use
  Company Number: US-ABBVIE-12P-163-0989203-00

PATIENT
  Sex: Male
  Weight: 3.31 kg

DRUGS (2)
  1. HUMIRA [Suspect]
     Indication: MATERNAL EXPOSURE TIMING UNSPECIFIED
     Route: 063
  2. HUMIRA [Suspect]
     Indication: EXPOSURE DURING BREAST FEEDING

REACTIONS (1)
  - Exposure during breast feeding [Unknown]
